FAERS Safety Report 7403798-3 (Version None)
Quarter: 2011Q2

REPORT INFORMATION
  Report Type: 
  Country: None (occurrence: None)
  Receive Date: 20110408
  Receipt Date: 20110406
  Transmission Date: 20111010
  Serious: Yes (Hospitalization)
  Sender: FDA-Public Use
  Company Number: CHPA2011IT05006

PATIENT
  Sex: Female

DRUGS (3)
  1. PARACETAMOL [Suspect]
     Indication: BACK PAIN
  2. PARACETAMOL [Suspect]
     Indication: INFLUENZA
     Dosage: UNK, UNK
     Route: 065
     Dates: start: 20110115, end: 20110121
  3. IBUPROFEN [Suspect]
     Indication: BACK PAIN
     Dosage: 600 MG, UNK
     Route: 048
     Dates: start: 20110115, end: 20110129

REACTIONS (1)
  - HEPATITIS [None]
